FAERS Safety Report 5812029-7 (Version None)
Quarter: 2008Q3

REPORT INFORMATION
  Report Type: 
  Country: None (occurrence: None)
  Receive Date: 20080716
  Receipt Date: 20080708
  Transmission Date: 20090109
  Serious: Yes (Life-Threatening, Hospitalization)
  Sender: FDA-Public Use
  Company Number: PHFR2003GB00619

PATIENT
  Sex: Male

DRUGS (2)
  1. CLOZARIL [Suspect]
     Indication: SCHIZOPHRENIA
     Dosage: 900MG/DAY
     Route: 048
     Dates: start: 20020927, end: 20030118
  2. RISPERIDONE [Concomitant]
     Dosage: 7MG/DAY
     Route: 048
     Dates: start: 20010201

REACTIONS (5)
  - APPENDICECTOMY [None]
  - APPENDICITIS PERFORATED [None]
  - CONSTIPATION [None]
  - PERITONITIS [None]
  - SURGERY [None]
